FAERS Safety Report 7318774-9 (Version None)
Quarter: 2011Q1

REPORT INFORMATION
  Report Type: 
  Country: None (occurrence: None)
  Receive Date: 20110228
  Receipt Date: 20100513
  Transmission Date: 20110831
  Serious: No
  Sender: FDA-Public Use
  Company Number: A0859572A

PATIENT
  Age: 55 Year
  Sex: Male

DRUGS (7)
  1. RELPAX [Concomitant]
  2. QUINIDINE HCL [Concomitant]
  3. ASPIRIN [Concomitant]
  4. TESTOSTERONE [Concomitant]
  5. IMITREX [Suspect]
     Indication: MIGRAINE
     Dosage: 6ML AS REQUIRED
     Route: 058
     Dates: start: 19920101
  6. PERCOCET [Concomitant]
  7. INSULIN [Concomitant]

REACTIONS (1)
  - DRUG INEFFECTIVE [None]
